FAERS Safety Report 7004257-2 (Version None)
Quarter: 2010Q3

REPORT INFORMATION
  Report Type: 
  Country: None (occurrence: None)
  Receive Date: 20100920
  Receipt Date: 20100226
  Transmission Date: 20110219
  Serious: No
  Sender: FDA-Public Use
  Company Number: US-WYE-H13883810

PATIENT
  Sex: Female
  Weight: 91.25 kg

DRUGS (12)
  1. PRISTIQ [Suspect]
     Indication: DEPRESSION
     Route: 048
     Dates: start: 20100223
  2. SINGULAIR [Concomitant]
  3. LISINOPRIL [Concomitant]
  4. FOLIC ACID [Concomitant]
  5. INDOMETHACIN SODIUM [Concomitant]
  6. INSULIN [Concomitant]
  7. HUMALOG [Concomitant]
  8. AMARYL [Concomitant]
  9. LOVAZA [Concomitant]
  10. BENTYL [Concomitant]
  11. SYNTHROID [Concomitant]
  12. VALIUM [Concomitant]

REACTIONS (2)
  - HEADACHE [None]
  - NAUSEA [None]
